FAERS Safety Report 6157598-5 (Version None)
Quarter: 2009Q2

REPORT INFORMATION
  Report Type: 
  Country: None (occurrence: None)
  Receive Date: 20090416
  Receipt Date: 20090404
  Transmission Date: 20091009
  Serious: Yes (Hospitalization)
  Sender: FDA-Public Use
  Company Number: US-WATSON-2009-02307

PATIENT
  Sex: Female

DRUGS (6)
  1. PROPAFENONE (WATSON LABORATORIES) [Suspect]
     Indication: ATRIAL FIBRILLATION
     Dosage: 1 TABLET, TID
     Route: 048
     Dates: start: 20081127
  2. PREDNISONE TAB [Concomitant]
     Indication: TEMPORAL ARTERITIS
     Dosage: UNK
     Route: 048
  3. SYNTHROID [Concomitant]
     Indication: BASEDOW'S DISEASE
     Dosage: UNK
     Route: 048
  4. LORAZEPAM [Concomitant]
     Indication: ANXIETY
     Dosage: PRN
     Route: 048
  5. LORAZEPAM [Concomitant]
     Indication: FEELING OF RELAXATION
  6. LORAZEPAM [Concomitant]
     Indication: PAIN

REACTIONS (4)
  - CONDITION AGGRAVATED [None]
  - DYSPNOEA [None]
  - EMPHYSEMA [None]
  - TEMPORAL ARTERITIS [None]
